FAERS Safety Report 7656837-9 (Version None)
Quarter: 2011Q3

REPORT INFORMATION
  Report Type: 
  Country: None (occurrence: None)
  Receive Date: 20110804
  Receipt Date: 20110802
  Transmission Date: 20111222
  Serious: No
  Sender: FDA-Public Use
  Company Number: US-BAYER-2011-068399

PATIENT
  Age: 78 Year

DRUGS (1)
  1. GADAVIST [Suspect]
     Indication: IMAGING PROCEDURE
     Dosage: 7 ML, ONCE

REACTIONS (1)
  - ARTHRALGIA [None]
